FAERS Safety Report 7069989-9 (Version None)
Quarter: 2010Q4

REPORT INFORMATION
  Report Type: 
  Country: None (occurrence: None)
  Receive Date: 20101028
  Receipt Date: 20100802
  Transmission Date: 20110411
  Serious: No
  Sender: FDA-Public Use
  Company Number: US-WYE-H16741910

PATIENT
  Sex: Female

DRUGS (13)
  1. EFFEXOR [Suspect]
     Indication: DEPRESSION
  2. ZANTAC [Concomitant]
  3. CARDIZEM [Concomitant]
  4. ZOCOR [Concomitant]
  5. ULTRAM [Concomitant]
  6. VISTARIL [Concomitant]
  7. FOLIC ACID [Concomitant]
  8. KLONOPIN [Concomitant]
  9. KEPPRA [Concomitant]
  10. DOXEPIN HCL [Concomitant]
  11. METOPROLOL [Concomitant]
  12. BUSPIRONE HCL [Concomitant]
  13. AGGRENOX [Concomitant]

REACTIONS (1)
  - DRUG SCREEN FALSE POSITIVE [None]
